FAERS Safety Report 8178442-0 (Version None)
Quarter: 2012Q1

REPORT INFORMATION
  Report Type: 
  Country: None (occurrence: None)
  Receive Date: 20120301
  Receipt Date: 20120227
  Transmission Date: 20120608
  Serious: No
  Sender: FDA-Public Use
  Company Number: US-PFIZER INC-2012051549

PATIENT
  Sex: Female
  Weight: 63.492 kg

DRUGS (1)
  1. ZITHROMAX [Suspect]
     Indication: OROPHARYNGEAL PAIN
     Dosage: 250 MG, 1X/DAY
     Route: 048
     Dates: start: 20120209, end: 20120211

REACTIONS (11)
  - CHEST DISCOMFORT [None]
  - HEADACHE [None]
  - PARAESTHESIA [None]
  - IMPAIRED WORK ABILITY [None]
  - HYPOKALAEMIA [None]
  - DYSPHAGIA [None]
  - TONGUE PRURITUS [None]
  - TACHYCARDIA [None]
  - THROAT TIGHTNESS [None]
  - HYPERTENSION [None]
  - MALAISE [None]
